FAERS Safety Report 6292363-X (Version None)
Quarter: 2009Q3

REPORT INFORMATION
  Report Type: 
  Country: None (occurrence: None)
  Receive Date: 20090731
  Receipt Date: 20090722
  Transmission Date: 20100115
  Serious: Yes (Other)
  Sender: FDA-Public Use
  Company Number: CA-B.I. PHARMACEUTICALS,INC./RIDGEFIELD-2009-DE-05044GD

PATIENT
  Age: 54 Year
  Sex: Male

DRUGS (15)
  1. NEVIRAPINE [Suspect]
     Indication: HIV INFECTION
  2. NEVIRAPINE [Suspect]
  3. DIDANOSINE [Suspect]
     Indication: HIV INFECTION
  4. DIDANOSINE [Suspect]
  5. LAMIVUDINE [Suspect]
     Indication: HIV INFECTION
  6. LAMIVUDINE [Suspect]
  7. LOPINAVIR AND RITONAVIR [Suspect]
     Indication: HIV INFECTION
  8. ATAZANAVIR SULFATE [Suspect]
     Indication: HIV INFECTION
  9. ZIDOVUDINE [Suspect]
     Indication: HIV INFECTION
  10. STAVUDINE [Suspect]
     Indication: HIV INFECTION
  11. ABACAVIR [Suspect]
     Indication: HIV INFECTION
  12. TENOFOVIR [Suspect]
     Indication: HIV INFECTION
  13. SAQUINAVIR [Suspect]
     Indication: HIV INFECTION
  14. INDINIVIR SULFATE [Suspect]
     Indication: HIV INFECTION
  15. ENFUVIRTIDE [Suspect]
     Indication: HIV INFECTION

REACTIONS (5)
  - DIPLOPIA [None]
  - DYSPHAGIA [None]
  - EYELID PTOSIS [None]
  - LIPODYSTROPHY ACQUIRED [None]
  - PROGRESSIVE EXTERNAL OPHTHALMOPLEGIA [None]
